FAERS Safety Report 4536444-7 (Version None)
Quarter: 2004Q4

REPORT INFORMATION
  Report Type: 
  Country: None (occurrence: None)
  Receive Date: 20041223
  Receipt Date: 20041213
  Transmission Date: 20050328
  Serious: Yes (Hospitalization)
  Sender: FDA-Public Use
  Company Number: DE-JNJFOC-20041203293

PATIENT
  Sex: Female

DRUGS (3)
  1. DURAGESIC [Suspect]
     Indication: NEUROPATHIC PAIN
     Route: 062
  2. DURAGESIC [Suspect]
     Route: 062
  3. NOVALGIN [Concomitant]
     Route: 065

REACTIONS (7)
  - ARRHYTHMIA [None]
  - CONTUSION [None]
  - DRUG WITHDRAWAL SYNDROME [None]
  - FLATULENCE [None]
  - HYPERTENSION [None]
  - PANCREATITIS [None]
  - SYNCOPE [None]
